FAERS Safety Report 23305021 (Version 2)
Quarter: 2023Q4

REPORT INFORMATION
  Report Type: Spontaneous
  Country: US (occurrence: US)
  Receive Date: 20231218
  Receipt Date: 20231218
  Transmission Date: 20240109
  Serious: Yes (Other)
  Sender: FDA-Public Use
  Company Number: US-SAGENT PHARMACEUTICALS-2023SAG000168

PATIENT
  Age: 74 Year
  Sex: Male

DRUGS (1)
  1. KETOROLAC TROMETHAMINE [Suspect]
     Active Substance: KETOROLAC TROMETHAMINE
     Indication: Back pain
     Dosage: UNK
     Route: 065

REACTIONS (3)
  - Leukocyturia [Recovering/Resolving]
  - Drug hypersensitivity [Recovering/Resolving]
  - Renal tubular injury [Recovering/Resolving]
